FAERS Safety Report 4544945-0 (Version None)
Quarter: 2005Q1

REPORT INFORMATION
  Report Type: 
  Country: None (occurrence: None)
  Receive Date: 20050104
  Receipt Date: 20041228
  Transmission Date: 20050727
  Serious: Yes (Hospitalization)
  Sender: FDA-Public Use
  Company Number: US-2004-027284

PATIENT
  Age: 58 Year
  Sex: Male

DRUGS (3)
  1. BETASERON [Suspect]
     Indication: SECONDARY PROGRESSIVE MULTIPLE SCLEROSIS
     Dosage: SEE IMAGE
     Route: 058
     Dates: start: 19991012, end: 20040611
  2. BETASERON [Suspect]
     Indication: SECONDARY PROGRESSIVE MULTIPLE SCLEROSIS
     Dosage: SEE IMAGE
     Route: 058
     Dates: start: 20040611
  3. SOLU-MEDROL [Suspect]
     Indication: MULTIPLE SCLEROSIS
     Dates: start: 20040323

REACTIONS (10)
  - ABASIA [None]
  - AGGRESSION [None]
  - ANGER [None]
  - CONVULSION [None]
  - DIABETES MELLITUS [None]
  - FATIGUE [None]
  - INFECTION [None]
  - MULTIPLE SCLEROSIS [None]
  - PANCREATITIS [None]
  - THROMBOSIS [None]
